FAERS Safety Report 21592299 (Version 1)
Quarter: 2022Q4

REPORT INFORMATION
  Report Type: Spontaneous
  Country: US (occurrence: None)
  Receive Date: 20221113
  Receipt Date: 20221113
  Transmission Date: 20230113
  Serious: No
  Sender: FDA-Public Use
  Company Number: None

PATIENT
  Age: 38 Year
  Sex: Female

DRUGS (4)
  1. JEUVEAU [Suspect]
     Active Substance: PRABOTULINUMTOXINA-XVFS
     Indication: Skin wrinkling
     Route: 058
     Dates: start: 20221102, end: 20221102
  2. Ubrevely [Concomitant]
  3. ajovey [Concomitant]
  4. VITAMIN D [Concomitant]
     Active Substance: VITAMIN D NOS

REACTIONS (17)
  - Headache [None]
  - Dizziness [None]
  - Eye pain [None]
  - Vision blurred [None]
  - Periorbital pain [None]
  - Muscle tightness [None]
  - Nausea [None]
  - Dysarthria [None]
  - Swollen tongue [None]
  - Eye swelling [None]
  - Swelling face [None]
  - Sleep disorder [None]
  - Dyspnoea [None]
  - Anaphylactic shock [None]
  - Palpitations [None]
  - Pain [None]
  - Fatigue [None]

NARRATIVE: CASE EVENT DATE: 20221102
